FAERS Safety Report 8352151-7 (Version None)
Quarter: 2012Q2

REPORT INFORMATION
  Report Type: 
  Country: None (occurrence: None)
  Receive Date: 20120509
  Receipt Date: 20120430
  Transmission Date: 20120825
  Serious: Yes (Other)
  Sender: FDA-Public Use
  Company Number: ADR-2012-00839

PATIENT
  Age: 64 Year
  Sex: Male

DRUGS (1)
  1. BACLOFEN [Suspect]
     Indication: CEREBRAL PALSY

REACTIONS (2)
  - LIPOMA [None]
  - IMPLANT SITE DISCHARGE [None]
